FAERS Safety Report 8669810 (Version 2)
Quarter: 2014Q2

REPORT INFORMATION
  Report Type: Spontaneous
  Country: CN (occurrence: CN)
  Receive Date: 20120718
  Receipt Date: 20140527
  Transmission Date: 20141212
  Serious: Yes (Other)
  Sender: FDA-Public Use
  Company Number: CN-JNJFOC-20120705033

PATIENT
  Age: 50 Year
  Sex: Female

DRUGS (5)
  1. REMICADE [Suspect]
     Indication: PSORIATIC ARTHROPATHY
     Dosage: FOURTH DOSE
     Route: 042
     Dates: start: 20120515
  2. REMICADE [Suspect]
     Indication: PSORIATIC ARTHROPATHY
     Route: 042
     Dates: start: 20120315
  3. REMICADE [Suspect]
     Indication: PSORIATIC ARTHROPATHY
     Dosage: SECOND DOSE
     Route: 042
     Dates: start: 20120216
  4. REMICADE [Suspect]
     Indication: PSORIATIC ARTHROPATHY
     Dosage: FIRST DOSE
     Route: 042
     Dates: start: 20120202
  5. ANTIALLERGIC DRUGS [Concomitant]
     Indication: PREMEDICATION
     Route: 065

REACTIONS (4)
  - Suffocation feeling [Recovered/Resolved]
  - Infusion related reaction [Recovered/Resolved]
  - Chest discomfort [Recovered/Resolved]
  - Rash pruritic [Recovered/Resolved]
